FAERS Safety Report 17516937 (Version 1)
Quarter: 2020Q1

REPORT INFORMATION
  Report Type: Spontaneous
  Country: FR (occurrence: FR)
  Receive Date: 20200309
  Receipt Date: 20200309
  Transmission Date: 20200409
  Serious: Yes (Hospitalization, Other)
  Sender: FDA-Public Use
  Company Number: FR-MYLANLABS-2020M1023640

PATIENT
  Age: 71 Year
  Sex: Male

DRUGS (14)
  1. PREDNISONE. [Suspect]
     Active Substance: PREDNISONE
     Indication: CHRONIC LYMPHOCYTIC LEUKAEMIA RECURRENT
     Dosage: 0.5 MG/KG
     Route: 048
  2. RITUXIMAB. [Suspect]
     Active Substance: RITUXIMAB
     Indication: CHRONIC LYMPHOCYTIC LEUKAEMIA RECURRENT
     Dosage: 375 MG/M2 1 OF THE FIRST CYCLE,
     Route: 041
     Dates: start: 201404
  3. RITUXIMAB. [Suspect]
     Active Substance: RITUXIMAB
     Dosage: 500MG/M2 DAY 1 OF THE SECOND CYCLE (WEEK 1)
     Route: 041
     Dates: start: 201404
  4. IBRUTINIB [Concomitant]
     Active Substance: IBRUTINIB
     Indication: CHRONIC LYMPHOCYTIC LEUKAEMIA
     Dosage: 1 DOSAGE FORM, QD
     Route: 065
  5. METHOTREXATE. [Suspect]
     Active Substance: METHOTREXATE
     Dosage: 2000 MG/M2,CYCLIC
     Route: 042
  6. VENETOCLAX. [Suspect]
     Active Substance: VENETOCLAX
     Indication: CHRONIC LYMPHOCYTIC LEUKAEMIA
     Dosage: 50 MG PER DAY: 5 DAY, 100 MG PER DAY: 13 DAYS AND 200 MG PER DAY: CONTINUOUSLY
     Route: 065
  7. CYCLOPHOSPHAMIDE. [Suspect]
     Active Substance: CYCLOPHOSPHAMIDE
     Indication: CHRONIC LYMPHOCYTIC LEUKAEMIA
     Dosage: UNK
     Route: 065
     Dates: start: 201404
  8. RITUXIMAB. [Suspect]
     Active Substance: RITUXIMAB
     Dosage: 375 MG/M2 WEEK 13
     Route: 041
  9. IBRUTINIB [Concomitant]
     Active Substance: IBRUTINIB
     Dosage: 420 MILLIGRAM, QD
     Route: 065
     Dates: start: 201606
  10. VENETOCLAX. [Suspect]
     Active Substance: VENETOCLAX
     Dosage: 200 MILLIGRAM, QD
     Route: 065
  11. VENETOCLAX. [Suspect]
     Active Substance: VENETOCLAX
     Dosage: 20 MILLIGRAM, QD
     Route: 065
  12. FLUDARABINE [Suspect]
     Active Substance: FLUDARABINE PHOSPHATE
     Indication: CHRONIC LYMPHOCYTIC LEUKAEMIA
     Dosage: UNK
     Route: 065
     Dates: start: 201404
  13. BENDAMUSTINE HYDROCHLORIDE. [Suspect]
     Active Substance: BENDAMUSTINE HYDROCHLORIDE
     Indication: CHRONIC LYMPHOCYTIC LEUKAEMIA
     Route: 065
  14. METHOTREXATE. [Suspect]
     Active Substance: METHOTREXATE
     Indication: CHRONIC LYMPHOCYTIC LEUKAEMIA
     Dosage: DAY 1-15
     Route: 042

REACTIONS (5)
  - Cytopenia [Unknown]
  - Neurological symptom [Recovered/Resolved with Sequelae]
  - Neutropenia [Unknown]
  - Thrombocytopenia [Unknown]
  - Anaemia [Unknown]
